FAERS Safety Report 5460371-4 (Version None)
Quarter: 2007Q3

REPORT INFORMATION
  Report Type: 
  Country: None (occurrence: None)
  Receive Date: 20070919
  Receipt Date: 20070702
  Transmission Date: 20080115
  Serious: Yes (Other)
  Sender: FDA-Public Use
  Company Number: US-ASTRAZENECA-2007UW15746

PATIENT
  Age: 14471 Day
  Sex: Male
  Weight: 74.1 kg

DRUGS (2)
  1. SEROQUEL [Suspect]
     Indication: DEPRESSION
     Dates: start: 20030109, end: 20050119
  2. LEXAPRO [Concomitant]
     Dates: start: 20030101

REACTIONS (1)
  - PANCREATITIS [None]
